FAERS Safety Report 5367196-9 (Version None)
Quarter: 2007Q2

REPORT INFORMATION
  Report Type: 
  Country: None (occurrence: None)
  Receive Date: 20070620
  Receipt Date: 20070620
  Transmission Date: 20071010
  Serious: No
  Sender: FDA-Public Use
  Company Number: None

PATIENT
  Age: 70 Year
  Sex: Male

DRUGS (1)
  1. FLUOROURACIL [Suspect]
     Indication: BASAL CELL CARCINOMA
     Dosage: 5GM EVERY DAY TOP
     Route: 061
     Dates: start: 20070601, end: 20070616

REACTIONS (6)
  - ERYTHEMA MULTIFORME [None]
  - PRURITUS [None]
  - PURPURA [None]
  - RASH [None]
  - SKIN EXFOLIATION [None]
  - URTICARIA [None]
